FAERS Safety Report 15866095 (Version 1)
Quarter: 2019Q1

REPORT INFORMATION
  Report Type: Spontaneous
  Country: US (occurrence: US)
  Receive Date: 20190125
  Receipt Date: 20190125
  Transmission Date: 20190417
  Serious: No
  Sender: FDA-Public Use
  Company Number: US-CIPLA LTD.-2016US06207

PATIENT

DRUGS (1)
  1. FOLIC ACID. [Suspect]
     Active Substance: FOLIC ACID
     Dosage: 1 MG, UNK
     Route: 065

REACTIONS (1)
  - Rhinitis [Unknown]
